FAERS Safety Report 10442627 (Version 2)
Quarter: 2014Q3

REPORT INFORMATION
  Report Type: Spontaneous
  Country: US (occurrence: US)
  Receive Date: 20140909
  Receipt Date: 20140919
  Transmission Date: 20150326
  Serious: No
  Sender: FDA-Public Use
  Company Number: US-GILEAD-2014-0114214

PATIENT
  Age: 93 Year
  Sex: Male

DRUGS (3)
  1. NITRO-DUR [Concomitant]
     Active Substance: NITROGLYCERIN
  2. ISOSORBIDE [Concomitant]
     Active Substance: ISOSORBIDE
  3. RANEXA [Suspect]
     Active Substance: RANOLAZINE
     Indication: PRODUCT USED FOR UNKNOWN INDICATION
     Dosage: 500 MG, BID
     Route: 065

REACTIONS (2)
  - Chromaturia [Recovered/Resolved]
  - Chromaturia [Recovered/Resolved]

NARRATIVE: CASE EVENT DATE: 20140505
